FAERS Safety Report 23922487 (Version 1)
Quarter: 2024Q2

REPORT INFORMATION
  Report Type: Spontaneous
  Country: US (occurrence: US)
  Receive Date: 20240531
  Receipt Date: 20240531
  Transmission Date: 20240716
  Serious: Yes (Other)
  Sender: FDA-Public Use
  Company Number: US-TEVA-VS-3201518

PATIENT
  Age: 67 Year
  Sex: Female
  Weight: 63.5 kg

DRUGS (3)
  1. AJOVY [Suspect]
     Active Substance: FREMANEZUMAB-VFRM
     Indication: Migraine
     Dosage: 225/1.5 MG/ML
     Route: 065
  2. AJOVY [Suspect]
     Active Substance: FREMANEZUMAB-VFRM
     Dosage: 225/1.5 MG/ML
     Route: 065
  3. UBRELVY [Concomitant]
     Active Substance: UBROGEPANT

REACTIONS (4)
  - Appendicectomy [Unknown]
  - Incorrect dose administered by device [Unknown]
  - Injection site bruising [Unknown]
  - Wrong technique in product usage process [Unknown]

NARRATIVE: CASE EVENT DATE: 20240521
